FAERS Safety Report 9837916 (Version 4)
Quarter: 2014Q4

REPORT INFORMATION
  Report Type: Spontaneous
  Country: US (occurrence: US)
  Receive Date: 20140123
  Receipt Date: 20141209
  Transmission Date: 20150529
  Serious: Yes (Other)
  Sender: FDA-Public Use
  Company Number: US-BAYER-2014-009538

PATIENT
  Age: 27 Year
  Sex: Female
  Weight: 98.41 kg

DRUGS (2)
  1. MIRENA [Suspect]
     Active Substance: LEVONORGESTREL
     Indication: CONTRACEPTION
     Dosage: 20 MCG/24HR, CONT
     Route: 015
     Dates: start: 20080107, end: 20091006
  2. MIRENA [Suspect]
     Active Substance: LEVONORGESTREL
     Indication: CONTRACEPTION
     Dosage: 20 MCG/24HR, CONT
     Route: 015
     Dates: start: 20091112, end: 20130220

REACTIONS (7)
  - Device difficult to use [None]
  - Emotional distress [None]
  - Device expulsion [None]
  - Pain [None]
  - Uterine perforation [None]
  - Device issue [None]
  - Injury [None]

NARRATIVE: CASE EVENT DATE: 20091006
